FAERS Safety Report 9253735 (Version 2)
Quarter: 2013Q2

REPORT INFORMATION
  Report Type: Spontaneous
  Country: BR (occurrence: BR)
  Receive Date: 20130425
  Receipt Date: 20130503
  Transmission Date: 20140414
  Serious: Yes (Life-Threatening)
  Sender: FDA-Public Use
  Company Number: BR-AMGEN-BRASP2013028475

PATIENT
  Age: 59 Year
  Sex: Female
  Weight: 72 kg

DRUGS (2)
  1. ENBREL [Suspect]
     Indication: RHEUMATOID ARTHRITIS
     Dosage: 50 MG, 1X/WEEK
     Route: 058
  2. METHOTREXATE [Concomitant]
     Dosage: 15 MG, WEEKLY

REACTIONS (5)
  - Generalised erythema [Unknown]
  - Asthenia [Unknown]
  - Dermatitis allergic [Unknown]
  - Dysphagia [Unknown]
  - Drug ineffective [Unknown]
